FAERS Safety Report 24692347 (Version 4)
Quarter: 2025Q1

REPORT INFORMATION
  Report Type: Spontaneous
  Country: US (occurrence: US)
  Receive Date: 20241203
  Receipt Date: 20250131
  Transmission Date: 20250409
  Serious: No
  Sender: PFIZER
  Company Number: US-PFIZER INC-202400309062

PATIENT
  Age: 14 Year
  Sex: Male

DRUGS (1)
  1. NGENLA [Suspect]
     Active Substance: SOMATROGON-GHLA
     Dosage: 29.5 MG, WEEKLY

REACTIONS (3)
  - Injection site pain [Unknown]
  - Needle issue [Unknown]
  - Incorrect dose administered by device [Unknown]
